FAERS Safety Report 12280260 (Version 3)
Quarter: 2017Q2

REPORT INFORMATION
  Report Type: Report from Study
  Country: US (occurrence: US)
  Receive Date: 20160419
  Receipt Date: 20170417
  Transmission Date: 20170830
  Serious: No
  Sender: FDA-Public Use
  Company Number: PHEH2016US008990

PATIENT
  Age: 35 Year
  Sex: Female

DRUGS (2)
  1. COSENTYX [Suspect]
     Active Substance: SECUKINUMAB
     Indication: PSORIASIS
     Dosage: UNK
     Route: 065
     Dates: start: 20150515, end: 20170410
  2. COSENTYX [Suspect]
     Active Substance: SECUKINUMAB
     Indication: PSORIATIC ARTHROPATHY

REACTIONS (7)
  - Malaise [Unknown]
  - Psoriasis [Unknown]
  - Influenza [Unknown]
  - Drug effect incomplete [Unknown]
  - Atypical pneumonia [Unknown]
  - Pain [Unknown]
  - Viral upper respiratory tract infection [Unknown]

NARRATIVE: CASE EVENT DATE: 20160201
